FAERS Safety Report 15751719 (Version 1)
Quarter: 2018Q4

REPORT INFORMATION
  Report Type: Spontaneous
  Country: BE (occurrence: BE)
  Receive Date: 20181221
  Receipt Date: 20181221
  Transmission Date: 20190205
  Serious: Yes (Life-Threatening, Other)
  Sender: FDA-Public Use
  Company Number: PHHY2018BE190538

PATIENT
  Age: 3 Month
  Sex: Female

DRUGS (2)
  1. TACROLIMUS. [Suspect]
     Active Substance: TACROLIMUS
     Indication: AUTOIMMUNE ENTEROPATHY
     Dosage: UNK
     Route: 061
  2. ROTAVIRUS VACCINE [Suspect]
     Active Substance: HUMAN ROTAVIRUS A
     Indication: PROPHYLAXIS
     Dosage: UNK
     Route: 048

REACTIONS (5)
  - Hepatitis [Unknown]
  - Autoimmune enteropathy [Unknown]
  - Diarrhoea [Unknown]
  - Intestinal villi atrophy [Unknown]
  - Apoptosis [Unknown]
